FAERS Safety Report 17558068 (Version 1)
Quarter: 2020Q1

REPORT INFORMATION
  Report Type: Report from Study
  Country: GB (occurrence: GB)
  Receive Date: 20200318
  Receipt Date: 20200318
  Transmission Date: 20200409
  Serious: Yes (Other)
  Sender: FDA-Public Use
  Company Number: GB-JNJFOC-20200318824

PATIENT
  Sex: Female

DRUGS (1)
  1. STELARA [Suspect]
     Active Substance: USTEKINUMAB
     Indication: PSORIASIS
     Route: 058
     Dates: start: 201410

REACTIONS (5)
  - Therapeutic product effect decreased [Unknown]
  - Suicidal ideation [Unknown]
  - Insomnia [Unknown]
  - Psoriasis [Unknown]
  - Mental disorder [Unknown]
